FAERS Safety Report 17901077 (Version 1)
Quarter: 2020Q2

REPORT INFORMATION
  Report Type: Spontaneous
  Country: DE (occurrence: DE)
  Receive Date: 20200616
  Receipt Date: 20200616
  Transmission Date: 20200714
  Serious: Yes (Congenital Anomaly, Other)
  Sender: FDA-Public Use
  Company Number: DE-TORRENT-00017735

PATIENT
  Age: 1 Day
  Sex: Male
  Weight: 3 kg

DRUGS (4)
  1. VOMEX A [Concomitant]
     Active Substance: DIMENHYDRINATE
     Indication: MORNING SICKNESS
     Dosage: 120 [MG/D]/DIFFERING DATES: BEGIN AT GW 9 OR 12.
     Route: 064
  2. CETIRIZINE [Concomitant]
     Active Substance: CETIRIZINE HYDROCHLORIDE
     Indication: SEASONAL ALLERGY
     Dosage: 10 [MG/D]/ONLY, IF NEEDED
     Route: 064
  3. VENLAFAXINE [Suspect]
     Active Substance: VENLAFAXINE HYDROCHLORIDE
     Indication: ANXIETY DISORDER
     Dosage: 150 [MG/D (37.5)]/150 MG/D UNTIL GW 14, THEN SLOW REDUCTION UNTIL DELIVERY: 37.5 MG/D
     Route: 064
     Dates: start: 20181123, end: 20190808
  4. FOLIO FORTE [Concomitant]
     Active Substance: FOLIC ACID\VITAMINS
     Indication: PROPHYLAXIS OF NEURAL TUBE DEFECT
     Dosage: 0.8 [MG/D ]
     Route: 064
     Dates: start: 20181227, end: 20190311

REACTIONS (6)
  - Premature baby [Unknown]
  - Anomalous pulmonary venous connection [Recovered/Resolved with Sequelae]
  - Pulmonary arterial hypertension [Recovered/Resolved]
  - Patent ductus arteriosus [Recovered/Resolved with Sequelae]
  - Atrial septal defect [Recovered/Resolved with Sequelae]
  - Foetal exposure during pregnancy [Unknown]

NARRATIVE: CASE EVENT DATE: 20181123
